FAERS Safety Report 11319074 (Version 1)
Quarter: 2015Q3

REPORT INFORMATION
  Report Type: Spontaneous
  Country: US (occurrence: US)
  Receive Date: 20150729
  Receipt Date: 20150729
  Transmission Date: 20151125
  Serious: No
  Sender: FDA-Public Use
  Company Number: US-ACTELION PHARMACEUTICALS US, INC.-A-NJ2015-119701

PATIENT
  Age: 49 Year
  Sex: Female

DRUGS (2)
  1. OPSUMIT [Suspect]
     Active Substance: MACITENTAN
     Indication: PULMONARY HYPERTENSION
     Dosage: 10 MG, UNK
     Route: 048
     Dates: start: 20140207, end: 20150611
  2. OPSUMIT [Suspect]
     Active Substance: MACITENTAN
     Dosage: 10 UNK, UNK
     Route: 048
     Dates: start: 20150615

REACTIONS (5)
  - Chest pain [Unknown]
  - Drug dose omission [Unknown]
  - Dizziness [Unknown]
  - Dysstasia [Unknown]
  - Dyspnoea [Unknown]

NARRATIVE: CASE EVENT DATE: 20150611
